FAERS Safety Report 8816881 (Version 1)
Quarter: 2012Q4

REPORT INFORMATION
  Report Type: Spontaneous
  Country: US (occurrence: None)
  Receive Date: 20121002
  Receipt Date: 20121002
  Transmission Date: 20130627
  Serious: Yes (Hospitalization)
  Sender: FDA-Public Use
  Company Number: AUR-APL-2012-04147

PATIENT
  Age: 63 Year
  Sex: Female

DRUGS (2)
  1. METOPROLOL [Suspect]
     Indication: DRUG USE FOR UNKNOWN INDICATION
  2. ENBREL [Suspect]
     Indication: PSORIASIS
     Dosage: 14.2857 MG (50 mg, 2 in 1 wk)
     Route: 058
     Dates: start: 20120106, end: 2012

REACTIONS (5)
  - Kidney infection [None]
  - Hypersensitivity [None]
  - Amnesia [None]
  - Confusional state [None]
  - Psoriasis [None]
